FAERS Safety Report 9712442 (Version 2)
Quarter: 2013Q4

REPORT INFORMATION
  Report Type: Spontaneous
  Country: US (occurrence: US)
  Receive Date: 20131126
  Receipt Date: 20131126
  Transmission Date: 20140711
  Serious: No
  Sender: FDA-Public Use
  Company Number: US-BRISTOL-MYERS SQUIBB COMPANY-18875492

PATIENT
  Age: 84 Year
  Sex: Female
  Weight: 68.03 kg

DRUGS (5)
  1. BYDUREON [Suspect]
     Indication: TYPE 2 DIABETES MELLITUS
     Dosage: LAST DOSE ON:19MAY13
     Route: 058
     Dates: start: 20130317, end: 201305
  2. GLIMEPIRIDE [Suspect]
     Route: 048
  3. CARVEDILOL [Concomitant]
  4. PRAVASTATIN SODIUM [Concomitant]
  5. LISINOPRIL [Concomitant]

REACTIONS (9)
  - Blood glucose increased [Recovered/Resolved]
  - Blood glucose decreased [Not Recovered/Not Resolved]
  - Influenza [Unknown]
  - Diarrhoea [Unknown]
  - Anxiety [Unknown]
  - Infrequent bowel movements [Not Recovered/Not Resolved]
  - Constipation [Unknown]
  - Abdominal pain [Unknown]
  - Drug hypersensitivity [Unknown]
